FAERS Safety Report 15933436 (Version 2)
Quarter: 2019Q3

REPORT INFORMATION
  Report Type: Spontaneous
  Country: US (occurrence: US)
  Receive Date: 20190207
  Receipt Date: 20190819
  Transmission Date: 20191004
  Serious: Yes (Hospitalization, Other)
  Sender: FDA-Public Use
  Company Number: US-MYLANLABS-2019M1008966

PATIENT
  Age: 62 Year
  Sex: Female
  Weight: 76 kg

DRUGS (2)
  1. ATORVASTATIN CALCIUM TABLETS [Suspect]
     Active Substance: ATORVASTATIN CALCIUM
     Indication: BLOOD CHOLESTEROL INCREASED
     Dosage: TAKING ATORVASTATIN 20 MG AND ATORVASTATIN 40 MG FOR A TOTAL OF 60 MG DAILY AT NIGHT TIME, HS
     Route: 048
     Dates: end: 20180909
  2. ATORVASTATIN CALCIUM TABLETS [Suspect]
     Active Substance: ATORVASTATIN CALCIUM
     Indication: BLOOD CHOLESTEROL INCREASED
     Dosage: TAKING ATORVASTATIN 20 MG AND ATORVASTATIN 40 MG FOR A TOTAL OF 60 MG DAILY AT NIGHT TIME, HS, HS
     Route: 048
     Dates: end: 20180909

REACTIONS (4)
  - Fall [Unknown]
  - Subarachnoid haemorrhage [Unknown]
  - Tooth avulsion [Unknown]
  - Loss of consciousness [Unknown]

NARRATIVE: CASE EVENT DATE: 20180909
